FAERS Safety Report 8929033 (Version 1)
Quarter: 2012Q4

REPORT INFORMATION
  Report Type: 
  Country: US (occurrence: US)
  Receive Date: 20121127
  Receipt Date: 20121127
  Transmission Date: 20130627
  Serious: Yes (Other)
  Sender: FDA-Public Use
  Company Number: US-BAYER-2012-124034

PATIENT
  Age: 53 Year
  Sex: Female
  Weight: 79.37 kg

DRUGS (8)
  1. ALKA-SELTZER PLUS NIGHT SEVERE COLD, COUGH AND FLU [Suspect]
     Indication: NASAL CONGESTION
     Dosage: One DOSE, ONCE
     Route: 048
     Dates: start: 20121103, end: 20121103
  2. BAYER ASPIRIN REGIMEN ADULT LOW STRENGTH [Concomitant]
     Dosage: 1 DF, QD
     Route: 048
  3. PHENOBARBITAL [Concomitant]
     Dosage: 1 DF, UNK
     Route: 048
  4. BUSPIRONE [Concomitant]
  5. PROTONIX [Concomitant]
  6. PRAVASTATIN [Concomitant]
  7. ERYTHROMYCIN [Concomitant]
  8. KLOR-CON [Concomitant]

REACTIONS (1)
  - Convulsion [Recovered/Resolved]
